FAERS Safety Report 21772424 (Version 2)
Quarter: 2022Q4

REPORT INFORMATION
  Report Type: Spontaneous
  Country: US (occurrence: US)
  Receive Date: 20221223
  Receipt Date: 20221229
  Transmission Date: 20230112
  Serious: No
  Sender: FDA-Public Use
  Company Number: US-AMGEN-USASP2022219655

PATIENT
  Age: 48 Year
  Sex: Male

DRUGS (2)
  1. OTEZLA [Suspect]
     Active Substance: APREMILAST
     Indication: Psoriasis
     Dosage: 28 DAY TITRATION PACK, 10, 20, 30 MG
     Route: 065
     Dates: start: 20221116
  2. OTEZLA [Suspect]
     Active Substance: APREMILAST
     Dosage: 28 DAY TITRATION PACK, 10, 20, 30 MG
     Route: 065
     Dates: start: 20221118

REACTIONS (3)
  - Product dose omission in error [Not Recovered/Not Resolved]
  - Nausea [Not Recovered/Not Resolved]
  - Diarrhoea [Not Recovered/Not Resolved]

NARRATIVE: CASE EVENT DATE: 20220101
